FAERS Safety Report 13688290 (Version 1)
Quarter: 2017Q2

REPORT INFORMATION
  Report Type: Spontaneous
  Country: US (occurrence: US)
  Receive Date: 20170626
  Receipt Date: 20170626
  Transmission Date: 20170830
  Serious: No
  Sender: FDA-Public Use
  Company Number: US-TEVA-741674USA

PATIENT
  Age: 18 Year
  Sex: Male

DRUGS (1)
  1. LAMOTTAB-A [Suspect]
     Active Substance: LAMOTRIGINE
     Indication: EPILEPSY

REACTIONS (2)
  - Anxiety [Unknown]
  - Agitation [Unknown]
